FAERS Safety Report 15683175 (Version 1)
Quarter: 2018Q4

REPORT INFORMATION
  Report Type: Spontaneous
  Country: GB (occurrence: GB)
  Receive Date: 20181204
  Receipt Date: 20181204
  Transmission Date: 20190205
  Serious: Yes (Other)
  Sender: FDA-Public Use
  Company Number: GB-AUROBINDO-AUR-APL-2018-057937

PATIENT
  Age: 38 Year
  Sex: Male
  Weight: 108 kg

DRUGS (3)
  1. QUETIAPINE FILM-COATED TABLET [Suspect]
     Active Substance: QUETIAPINE
     Indication: PRODUCT USED FOR UNKNOWN INDICATION
     Dosage: 25 MILLIGRAM, UNK
     Route: 065
     Dates: start: 20170808
  2. ARIPIPRAZOLE. [Concomitant]
     Active Substance: ARIPIPRAZOLE
     Indication: PRODUCT USED FOR UNKNOWN INDICATION
     Dosage: 1 DOSAGE FORM, ONCE A DAY, EACH MORNING AS PER PSYCHIATRIST
     Route: 065
     Dates: start: 20181108
  3. LAMOTRIGINE. [Concomitant]
     Active Substance: LAMOTRIGINE
     Indication: PRODUCT USED FOR UNKNOWN INDICATION
     Dosage: 1 DOSAGE FORM, ONCE A DAY, AS DIRECTED BY THE SPECIALIST
     Route: 065
     Dates: start: 20170410, end: 20180918

REACTIONS (1)
  - Night sweats [Recovered/Resolved]

NARRATIVE: CASE EVENT DATE: 20170808
